FAERS Safety Report 6588884-2 (Version None)
Quarter: 2010Q1

REPORT INFORMATION
  Report Type: 
  Country: None (occurrence: None)
  Receive Date: 20100218
  Receipt Date: 20100208
  Transmission Date: 20100710
  Serious: Yes (Other)
  Sender: FDA-Public Use
  Company Number: B0633324A

PATIENT
  Age: 61 Year
  Sex: Male

DRUGS (7)
  1. HYDROCORTISONE [Suspect]
     Indication: ACNE
     Route: 061
  2. CETUXIMAB [Suspect]
     Indication: OROPHARYNGEAL CANCER STAGE UNSPECIFIED
     Dosage: 250MGM2 WEEKLY
     Route: 042
  3. EUCERIN [Suspect]
     Indication: ACNE
     Route: 065
  4. AVEENO [Suspect]
     Indication: ACNE
     Route: 065
  5. SOAP [Suspect]
     Indication: ACNE
     Route: 065
  6. DIPHENHYDRAMINE [Concomitant]
     Dosage: 50MG UNKNOWN
     Route: 065
  7. RADIOTHERAPY [Concomitant]
     Route: 065

REACTIONS (9)
  - APPLICATION SITE EXFOLIATION [None]
  - CONDITION AGGRAVATED [None]
  - DERMATITIS ACNEIFORM [None]
  - PAIN [None]
  - PRURITUS [None]
  - RASH [None]
  - RASH ERYTHEMATOUS [None]
  - RASH MACULO-PAPULAR [None]
  - SKIN EXFOLIATION [None]
